FAERS Safety Report 7706694-7 (Version None)
Quarter: 2011Q3

REPORT INFORMATION
  Report Type: 
  Country: None (occurrence: None)
  Receive Date: 20110824
  Receipt Date: 20110818
  Transmission Date: 20111222
  Serious: Yes (Other)
  Sender: FDA-Public Use
  Company Number: US-PFIZER INC-2007036392

PATIENT
  Sex: Female

DRUGS (2)
  1. NEURONTIN [Suspect]
     Indication: PAIN
     Dates: start: 20020101
  2. LEXAPRO [Concomitant]

REACTIONS (5)
  - CARDIAC DISORDER [None]
  - DEPRESSION [None]
  - INCONTINENCE [None]
  - AMNESIA [None]
  - HYPERTENSION [None]
